FAERS Safety Report 5717906-3 (Version None)
Quarter: 2008Q2

REPORT INFORMATION
  Report Type: 
  Country: None (occurrence: None)
  Receive Date: 20080425
  Receipt Date: 20080411
  Transmission Date: 20081010
  Serious: Yes (Hospitalization)
  Sender: FDA-Public Use
  Company Number: FR-GENENTECH-259566

PATIENT
  Sex: Female

DRUGS (4)
  1. AVASTIN [Suspect]
     Indication: BREAST CANCER
     Dosage: UNK, UNK
     Route: 042
     Dates: start: 20070802
  2. AVASTIN [Suspect]
     Dosage: 130 MG, SINGLE
  3. PACLITAXEL [Suspect]
     Indication: BREAST CANCER
     Dosage: UNK, UNK
     Dates: start: 20070802
  4. LYTOS [Concomitant]
     Indication: DRUG USE FOR UNKNOWN INDICATION

REACTIONS (1)
  - CARDIAC FAILURE [None]
